FAERS Safety Report 18884885 (Version 1)
Quarter: 2021Q1

REPORT INFORMATION
  Report Type: Spontaneous
  Country: TR (occurrence: TR)
  Receive Date: 20210212
  Receipt Date: 20210212
  Transmission Date: 20210420
  Serious: Yes (Other)
  Sender: FDA-Public Use
  Company Number: TR-LUPIN PHARMACEUTICALS INC.-2021-01595

PATIENT
  Age: 62 Year
  Sex: Female

DRUGS (4)
  1. OSELTAMIVIR [Suspect]
     Active Substance: OSELTAMIVIR
     Indication: COVID-19 PNEUMONIA
     Dosage: 75 MILLIGRAM, QD
     Route: 065
  2. AZITHROMYCIN ANHYDROUS. [Suspect]
     Active Substance: AZITHROMYCIN ANHYDROUS
     Indication: COVID-19 PNEUMONIA
     Dosage: 250 MILLIGRAM, QD
     Route: 065
  3. HYDROXYCHLOROQUINE SULFATE TABLETS [Suspect]
     Active Substance: HYDROXYCHLOROQUINE SULFATE
     Indication: COVID-19 PNEUMONIA
     Dosage: 200 MILLIGRAM, BID
     Route: 065
  4. ADALIMUMAB [Concomitant]
     Active Substance: ADALIMUMAB
     Indication: ANKYLOSING SPONDYLITIS
     Dosage: 40 MILLIGRAM, EVERY 2 WEEKS (STOPPED)
     Route: 065

REACTIONS (1)
  - Off label use [Unknown]
